FAERS Safety Report 10349849 (Version 1)
Quarter: 2014Q3

REPORT INFORMATION
  Report Type: Spontaneous
  Country: US (occurrence: US)
  Receive Date: 20140730
  Receipt Date: 20140730
  Transmission Date: 20150326
  Serious: No
  Sender: FDA-Public Use
  Company Number: US-009507513-1407USA006484

PATIENT
  Age: 63 Year
  Sex: Male
  Weight: 91 kg

DRUGS (2)
  1. REBETOL [Suspect]
     Active Substance: RIBAVIRIN
     Indication: HEPATITIS C
     Dosage: 600 MG BID, THREE CAPSULES EVERY MORNING AND TWO CAPSULES EVERY EVENING WITH FOOD FOR INFECTION
     Route: 048
     Dates: start: 20120104, end: 20120705
  2. VICTRELIS [Suspect]
     Active Substance: BOCEPREVIR
     Indication: HEPATITIS C
     Dosage: 800 MG TID, FOUR CAPSULES BY MOUTH EVERY EIGHT HOURS
     Route: 048
     Dates: start: 20120206, end: 20120705

REACTIONS (1)
  - Rash [Unknown]

NARRATIVE: CASE EVENT DATE: 20120404
